FAERS Safety Report 7062563-X (Version None)
Quarter: 2010Q4

REPORT INFORMATION
  Report Type: 
  Country: None (occurrence: None)
  Receive Date: 20101026
  Receipt Date: 20091119
  Transmission Date: 20110411
  Serious: Yes (Other)
  Sender: FDA-Public Use
  Company Number: US-PFIZER INC-2009281558

PATIENT
  Sex: Male
  Weight: 81.646 kg

DRUGS (1)
  1. LIPITOR [Suspect]
     Indication: ARTERIOSCLEROSIS
     Dosage: 10 MG, 1X/DAY
     Route: 048

REACTIONS (3)
  - AMNESIA [None]
  - CARDIAC DISORDER [None]
  - MYALGIA [None]
